FAERS Safety Report 6668254-9 (Version None)
Quarter: 2010Q2

REPORT INFORMATION
  Report Type: 
  Country: None (occurrence: None)
  Receive Date: 20100401
  Receipt Date: 20100323
  Transmission Date: 20101027
  Serious: Yes (Other)
  Sender: FDA-Public Use
  Company Number: 2010JP001764

PATIENT
  Age: 13 Year
  Sex: Male

DRUGS (7)
  1. PROGRAF [Suspect]
     Indication: BONE MARROW TRANSPLANT
  2. THIOTEPA [Concomitant]
  3. MELPHALAN HYDROCHLORIDE [Concomitant]
  4. METHOTREXATE [Concomitant]
  5. METHYLPREDNISOLONE [Concomitant]
  6. MYCOPHENOLATE MOFETIL [Concomitant]
  7. ETANERCEPT (ETANERCEPT) [Concomitant]

REACTIONS (2)
  - COMPLICATIONS OF BONE MARROW TRANSPLANT [None]
  - THROMBOTIC MICROANGIOPATHY [None]
